FAERS Safety Report 24439331 (Version 1)
Quarter: 2024Q4

REPORT INFORMATION
  Report Type: Report from Study
  Country: US (occurrence: US)
  Receive Date: 20241015
  Receipt Date: 20241015
  Transmission Date: 20250115
  Serious: Yes (Other)
  Sender: CSL BEHRING
  Company Number: US-BEH-2024169347

PATIENT
  Age: 40 Year
  Sex: Male
  Weight: 97.4 kg

DRUGS (6)
  1. BERINERT [Suspect]
     Active Substance: HUMAN C1-ESTERASE INHIBITOR
     Indication: Hereditary angioedema
     Dosage: 500 INTERNATIONAL UNIT/KILOGRAM AS ORDERED.
     Route: 042
     Dates: start: 20240118, end: 20240228
  2. BERINERT [Suspect]
     Active Substance: HUMAN C1-ESTERASE INHIBITOR
     Indication: Hereditary angioedema
     Dosage: 500 INTERNATIONAL UNIT/KILOGRAM AS ORDERED.
     Route: 042
     Dates: start: 20240118, end: 20240228
  3. BERINERT [Suspect]
     Active Substance: HUMAN C1-ESTERASE INHIBITOR
     Indication: Prophylaxis
  4. BERINERT [Suspect]
     Active Substance: HUMAN C1-ESTERASE INHIBITOR
     Indication: Prophylaxis
  5. BERINERT [Suspect]
     Active Substance: HUMAN C1-ESTERASE INHIBITOR
     Indication: Hereditary angioedema
     Dosage: 6000 IU/KG, BIW (PRODUCT STRENGHT: 3000)
     Route: 058
  6. BERINERT [Suspect]
     Active Substance: HUMAN C1-ESTERASE INHIBITOR
     Indication: Prophylaxis

REACTIONS (5)
  - Hereditary angioedema [Not Recovered/Not Resolved]
  - Prescription drug used without a prescription [Unknown]
  - Product distribution issue [Unknown]
  - Off label use [Unknown]
  - Product use issue [Unknown]

NARRATIVE: CASE EVENT DATE: 20240923
